FAERS Safety Report 13694785 (Version 1)
Quarter: 2017Q2

REPORT INFORMATION
  Report Type: Spontaneous
  Country: SI (occurrence: SI)
  Receive Date: 20170627
  Receipt Date: 20170627
  Transmission Date: 20170830
  Serious: Yes (Death, Hospitalization, Other)
  Sender: FDA-Public Use
  Company Number: SI-INCYTE CORPORATION-2017IN005022

PATIENT
  Age: 56 Year
  Sex: Male

DRUGS (9)
  1. JAKAVI [Suspect]
     Active Substance: RUXOLITINIB
     Indication: MYELOFIBROSIS
     Dosage: 20 MG, BID
     Route: 065
     Dates: start: 201407
  2. NILOTINIB [Suspect]
     Active Substance: NILOTINIB
     Indication: CHRONIC MYELOID LEUKAEMIA
     Dosage: 300 MG, BID
     Route: 065
  3. EPOETIN BETA [Concomitant]
     Active Substance: ERYTHROPOIETIN
     Indication: MYELOFIBROSIS
     Dosage: 30000 IU, QW
     Route: 065
  4. JAKAVI [Suspect]
     Active Substance: RUXOLITINIB
     Dosage: 15 MG, BID
     Route: 065
  5. PREDNISOLONE. [Suspect]
     Active Substance: PREDNISOLONE
     Indication: MYELOFIBROSIS
     Dosage: 8 MG, UNK
     Route: 065
     Dates: start: 2013
  6. JAKAVI [Suspect]
     Active Substance: RUXOLITINIB
     Dosage: 10 MG, BID
     Route: 065
  7. DEFERASIROX [Suspect]
     Active Substance: DEFERASIROX
     Indication: MYELOFIBROSIS
  8. IMATINIB [Suspect]
     Active Substance: IMATINIB
     Indication: CHRONIC MYELOID LEUKAEMIA
     Dosage: 400 MG, QD
     Route: 065
  9. DEFERASIROX [Suspect]
     Active Substance: DEFERASIROX
     Indication: CHRONIC MYELOID LEUKAEMIA
     Dosage: 500 MG, QD
     Route: 065
     Dates: start: 2013

REACTIONS (22)
  - Haemoglobin decreased [Unknown]
  - Transplantation complication [Fatal]
  - Multiple organ dysfunction syndrome [Unknown]
  - Anaemia [Unknown]
  - Myelofibrosis [Unknown]
  - White blood cell count increased [Unknown]
  - Central nervous system haemorrhage [Fatal]
  - Engraftment syndrome [Unknown]
  - Blast cell count increased [Unknown]
  - Respiratory disorder [Unknown]
  - Dyspnoea [Not Recovered/Not Resolved]
  - Product use in unapproved indication [Unknown]
  - Gastrointestinal haemorrhage [Fatal]
  - Subarachnoid haemorrhage [Fatal]
  - Cytopenia [Unknown]
  - Platelet count decreased [Unknown]
  - Splenomegaly [Unknown]
  - Venoocclusive disease [Fatal]
  - Febrile neutropenia [Fatal]
  - Candida sepsis [Fatal]
  - Malignant neoplasm progression [Unknown]
  - Karyotype analysis abnormal [Unknown]

NARRATIVE: CASE EVENT DATE: 2013
